FAERS Safety Report 8363029-7 (Version None)
Quarter: 2012Q2

REPORT INFORMATION
  Report Type: 
  Country: None (occurrence: None)
  Receive Date: 20120516
  Receipt Date: 20111013
  Transmission Date: 20120825
  Serious: No
  Sender: FDA-Public Use
  Company Number: US-ALEXION-A201101556

PATIENT
  Sex: Female
  Weight: 363.8 kg

DRUGS (8)
  1. PRANDIN [Concomitant]
     Dosage: 1 MG QD
     Route: 048
  2. FOLIC ACID [Concomitant]
     Dosage: 1 MG QD
     Route: 048
  3. HECTOROL [Concomitant]
     Dosage: 0.5 MCG UNK
     Route: 048
  4. JANUVIA [Concomitant]
     Dosage: 25 MG QD
     Route: 048
  5. SOLIRIS [Suspect]
     Indication: PAROXYSMAL NOCTURNAL HAEMOGLOBINURIA
     Dosage: 900 MG Q2W
     Route: 042
     Dates: start: 20080219
  6. CHOLECALCIFEROL [Concomitant]
     Dosage: 2000 UNITS QD
     Route: 048
  7. RAMIPRIL [Concomitant]
     Dosage: 5 MG QD
     Route: 048
  8. ASPIRIN [Concomitant]
     Dosage: 81 MG QD
     Route: 048

REACTIONS (2)
  - ASTHMA [None]
  - TRANSFUSION [None]
